FAERS Safety Report 23788341 (Version 1)
Quarter: 2024Q2

REPORT INFORMATION
  Report Type: Spontaneous
  Country: US (occurrence: None)
  Receive Date: 20240425
  Receipt Date: 20240425
  Transmission Date: 20240716
  Serious: No
  Sender: FDA-Public Use
  Company Number: None

PATIENT
  Age: 78 Year
  Sex: Male
  Weight: 80 kg

DRUGS (2)
  1. SULFAMETHOXAZOLE AND TRIMETHOPRIM [Suspect]
     Active Substance: SULFAMETHOXAZOLE\TRIMETHOPRIM
     Dates: start: 20231111, end: 20231117
  2. LOSARTAN [Concomitant]

REACTIONS (3)
  - Blood creatinine increased [None]
  - Hyperkalaemia [None]
  - Hyponatraemia [None]

NARRATIVE: CASE EVENT DATE: 20231204
